FAERS Safety Report 6208987-1 (Version None)
Quarter: 2009Q2

REPORT INFORMATION
  Report Type: 
  Country: None (occurrence: None)
  Receive Date: 20090529
  Receipt Date: 20090519
  Transmission Date: 20091009
  Serious: Yes (Other)
  Sender: FDA-Public Use
  Company Number: PHHY2009PE19199

PATIENT
  Age: 32 Year
  Sex: Female

DRUGS (2)
  1. EXJADE [Suspect]
     Indication: HAEMOSIDEROSIS
     Dosage: 20MG/KG/DAY
     Route: 048
     Dates: start: 20090330, end: 20090421
  2. EXJADE [Suspect]
     Dosage: 10MG/KG/DAY
     Route: 048
     Dates: start: 20090422

REACTIONS (1)
  - OCULAR ICTERUS [None]
